FAERS Safety Report 25113831 (Version 1)
Quarter: 2025Q1

REPORT INFORMATION
  Report Type: Spontaneous
  Country: US (occurrence: US)
  Receive Date: 20250324
  Receipt Date: 20250324
  Transmission Date: 20250409
  Serious: Yes (Life-Threatening, Hospitalization)
  Sender: CHEPLAPHARM
  Company Number: US-PFIZER INC-PV202500027469

PATIENT
  Age: 57 Year
  Sex: Female
  Weight: 84.3 kg

DRUGS (11)
  1. OLANZAPINE [Suspect]
     Active Substance: OLANZAPINE
  2. LEVOTHYROXINE SODIUM [Suspect]
     Active Substance: LEVOTHYROXINE SODIUM
  3. LORAZEPAM [Suspect]
     Active Substance: LORAZEPAM
  4. TUCATINIB [Suspect]
     Active Substance: TUCATINIB
     Dates: start: 20250122, end: 20250218
  5. ADO-TRASTUZUMAB EMTANSINE [Suspect]
     Active Substance: ADO-TRASTUZUMAB EMTANSINE
     Dates: start: 20250122, end: 20250212
  6. LOMOTIL [Concomitant]
     Active Substance: ATROPINE SULFATE\DIPHENOXYLATE HYDROCHLORIDE
  7. ONDANSETRON [Concomitant]
     Active Substance: ONDANSETRON
  8. CITALOPRAM [Concomitant]
     Active Substance: CITALOPRAM
  9. COMPAZINE [Concomitant]
     Active Substance: PROCHLORPERAZINE MALEATE
  10. GABAPENTIN [Concomitant]
     Active Substance: GABAPENTIN
  11. HYOSCYAMINE [Concomitant]
     Active Substance: HYOSCYAMINE

REACTIONS (3)
  - Personality change [Not Recovered/Not Resolved]
  - Diarrhoea [Unknown]
  - Nausea [Unknown]

NARRATIVE: CASE EVENT DATE: 20250212
